FAERS Safety Report 12608107 (Version 1)
Quarter: 2016Q3

REPORT INFORMATION
  Report Type: Spontaneous
  Country: NZ (occurrence: NZ)
  Receive Date: 20160729
  Receipt Date: 20160729
  Transmission Date: 20161109
  Serious: Yes (Other)
  Sender: FDA-Public Use
  Company Number: NZ-BAUSCH-BL-2016-017965

PATIENT
  Age: 27 Year
  Sex: Male

DRUGS (2)
  1. PREDNISOLONE ACETATE 1% [Suspect]
     Active Substance: PREDNISOLONE ACETATE
     Indication: KERATORHEXIS
     Route: 065
  2. LATANOPROST. [Concomitant]
     Active Substance: LATANOPROST
     Indication: KERATORHEXIS

REACTIONS (2)
  - Keratitis [Recovered/Resolved with Sequelae]
  - Corneal scar [Unknown]
